FAERS Safety Report 8496960-2 (Version None)
Quarter: 2012Q3

REPORT INFORMATION
  Report Type: 
  Country: None (occurrence: None)
  Receive Date: 20120709
  Receipt Date: 20120531
  Transmission Date: 20120928
  Serious: No
  Sender: FDA-Public Use
  Company Number: US-AMGEN-USASP2012034509

PATIENT
  Age: 34 Year
  Sex: Female

DRUGS (2)
  1. ENBREL [Suspect]
     Indication: PSORIASIS
  2. ENBREL [Suspect]
     Indication: PSORIATIC ARTHROPATHY
     Dosage: 50 MG, QWK
     Dates: start: 20070927, end: 20111001

REACTIONS (8)
  - PSORIASIS [None]
  - ARTHRALGIA [None]
  - OROPHARYNGEAL PAIN [None]
  - MUSCULOSKELETAL STIFFNESS [None]
  - COUGH [None]
  - PSORIATIC ARTHROPATHY [None]
  - PYREXIA [None]
  - EAR PAIN [None]
